FAERS Safety Report 22897722 (Version 2)
Quarter: 2025Q2

REPORT INFORMATION
  Report Type: Report from Study
  Country: CA (occurrence: CA)
  Receive Date: 20230902
  Receipt Date: 20250522
  Transmission Date: 20250717
  Serious: Yes (Other)
  Sender: SANDOZ
  Company Number: CA-002147023-NVSC2022CA163764

PATIENT
  Age: 67 Year
  Sex: Female

DRUGS (4)
  1. HYRIMOZ [Suspect]
     Active Substance: ADALIMUMAB-ADAZ
     Indication: Crohn^s disease
     Route: 058
     Dates: start: 20220709
  2. HYRIMOZ [Suspect]
     Active Substance: ADALIMUMAB-ADAZ
     Dosage: 40 MG, QW
     Route: 058
  3. HYRIMOZ [Suspect]
     Active Substance: ADALIMUMAB-ADAZ
     Route: 058
     Dates: start: 20220722
  4. HYRIMOZ [Suspect]
     Active Substance: ADALIMUMAB-ADAZ
     Route: 058
     Dates: start: 20221015

REACTIONS (14)
  - Diarrhoea haemorrhagic [Unknown]
  - Immunodeficiency [Unknown]
  - Haematochezia [Recovered/Resolved]
  - Pain [Unknown]
  - Peripheral swelling [Recovered/Resolved]
  - Musculoskeletal stiffness [Unknown]
  - General physical health deterioration [Unknown]
  - Back pain [Unknown]
  - COVID-19 [Unknown]
  - Pyrexia [Unknown]
  - Cough [Unknown]
  - Headache [Unknown]
  - Vomiting [Recovered/Resolved]
  - Off label use [Unknown]

NARRATIVE: CASE EVENT DATE: 20220723
